FAERS Safety Report 9173591 (Version 2)
Quarter: 2013Q2

REPORT INFORMATION
  Report Type: Spontaneous
  Country: US (occurrence: None)
  Receive Date: 20130314
  Receipt Date: 20130404
  Transmission Date: 20140414
  Serious: Yes (Hospitalization)
  Sender: FDA-Public Use
  Company Number: JPI-P-030500

PATIENT
  Age: 56 Year
  Sex: Female
  Weight: 98.88 kg

DRUGS (5)
  1. XYREM [Suspect]
     Indication: SLEEP DISORDER
     Dosage: 4.5 GM (2.25 GM, 2 IN 1 D), ORAL
     Dates: start: 20120913
  2. BUPROPION HYDROCHLORIDE [Concomitant]
  3. PAROXETINE HYDROCHLORIDE [Concomitant]
  4. TOPIRAMATE [Concomitant]
  5. ALPRAZOLAM [Concomitant]

REACTIONS (2)
  - Fall [None]
  - Ankle fracture [None]
